FAERS Safety Report 7190764-9 (Version None)
Quarter: 2010Q4

REPORT INFORMATION
  Report Type: 
  Country: None (occurrence: None)
  Receive Date: 20101223
  Receipt Date: 20101221
  Transmission Date: 20110411
  Serious: Yes (Other)
  Sender: FDA-Public Use
  Company Number: BR-PFIZER INC-2010177149

PATIENT
  Age: 66 Year
  Sex: Male

DRUGS (1)
  1. FRONTAL [Suspect]
     Dosage: 0.5 MG, 2X/DAY
     Route: 048
     Dates: start: 19971221

REACTIONS (1)
  - STENT PLACEMENT [None]
